FAERS Safety Report 4803853-8 (Version None)
Quarter: 2005Q4

REPORT INFORMATION
  Report Type: 
  Country: None (occurrence: None)
  Receive Date: 20051019
  Receipt Date: 20050307
  Transmission Date: 20060501
  Serious: Yes (Hospitalization)
  Sender: FDA-Public Use
  Company Number: US-MERCK-0503USA01236

PATIENT
  Age: 57 Year
  Sex: Male

DRUGS (3)
  1. VIOXX [Suspect]
     Route: 048
     Dates: start: 20000901, end: 20040901
  2. PRILOSEC [Concomitant]
     Route: 065
  3. VITAMINS (UNSPECIFIED) [Concomitant]
     Route: 065

REACTIONS (7)
  - BLOOD GLUCOSE INCREASED [None]
  - CAROTID ARTERY STENOSIS [None]
  - CEREBELLAR ARTERY THROMBOSIS [None]
  - CEREBRAL INFARCTION [None]
  - CEREBROVASCULAR ACCIDENT [None]
  - HYPERTENSION [None]
  - VERTEBRAL ARTERY OCCLUSION [None]
